FAERS Safety Report 5708536-8 (Version None)
Quarter: 2008Q2

REPORT INFORMATION
  Report Type: 
  Country: None (occurrence: None)
  Receive Date: 20080414
  Receipt Date: 20080414
  Transmission Date: 20081010
  Serious: Yes (Death, Hospitalization)
  Sender: FDA-Public Use
  Company Number: None

PATIENT
  Sex: Male
  Weight: 99 kg

DRUGS (5)
  1. GLEEVEC [Suspect]
     Indication: OLIGODENDROGLIOMA
     Dosage: 400MG PO QD
     Route: 048
     Dates: start: 20061120, end: 20080320
  2. HYDROXYUREA [Suspect]
     Dosage: 500 MG PO BID
     Route: 048
     Dates: start: 20061120, end: 20080320
  3. ZONEGRAN [Concomitant]
  4. OXYCODONE HCL [Concomitant]
  5. PHENERGAN [Concomitant]

REACTIONS (10)
  - BRAIN NEOPLASM [None]
  - GRUNTING [None]
  - HEADACHE [None]
  - ILL-DEFINED DISORDER [None]
  - INTRACRANIAL PRESSURE INCREASED [None]
  - LOSS OF CONSCIOUSNESS [None]
  - MYDRIASIS [None]
  - NEOPLASM PROGRESSION [None]
  - REFUSAL OF TREATMENT BY PATIENT [None]
  - UNRESPONSIVE TO STIMULI [None]
